FAERS Safety Report 7885197-3 (Version None)
Quarter: 2011Q4

REPORT INFORMATION
  Report Type: 
  Country: None (occurrence: None)
  Receive Date: 20111102
  Receipt Date: 20111028
  Transmission Date: 20120403
  Serious: Yes (Other)
  Sender: FDA-Public Use
  Company Number: BR-PFIZER INC-2009228439

PATIENT
  Age: 58 Year
  Sex: Female
  Weight: 59 kg

DRUGS (2)
  1. VARENICLINE TARTRATE [Suspect]
     Indication: TOBACCO USER
     Dosage: UNK, TWICE DAILY
     Route: 048
     Dates: start: 20111005
  2. VARENICLINE TARTRATE [Suspect]
     Indication: SMOKING CESSATION THERAPY
     Dosage: 1 MG, 2X/DAY
     Route: 048
     Dates: start: 20090508

REACTIONS (5)
  - ABDOMINAL DISTENSION [None]
  - FLATULENCE [None]
  - LABYRINTHITIS [None]
  - WEIGHT INCREASED [None]
  - ABDOMINAL PAIN UPPER [None]
